FAERS Safety Report 7672625-1 (Version None)
Quarter: 2011Q3

REPORT INFORMATION
  Report Type: 
  Country: None (occurrence: None)
  Receive Date: 20110809
  Receipt Date: 20110803
  Transmission Date: 20111222
  Serious: Yes (Life-Threatening)
  Sender: FDA-Public Use
  Company Number: JP-ASTRAZENECA-2011SE47086

PATIENT
  Age: 28216 Day
  Sex: Female

DRUGS (6)
  1. TPN ELECTROLYTES IN PLASTIC CONTAINER [Concomitant]
  2. VEEN-3G [Concomitant]
  3. MEROPENEM [Suspect]
     Indication: PNEUMONIA ASPIRATION
     Route: 041
     Dates: start: 20110728, end: 20110801
  4. SENNOSIDE [Concomitant]
  5. YOUPIS [Concomitant]
  6. DAI-KENCHU-TO [Concomitant]

REACTIONS (1)
  - THROMBOCYTOPENIA [None]
